FAERS Safety Report 6390349-8 (Version None)
Quarter: 2009Q4

REPORT INFORMATION
  Report Type: 
  Country: None (occurrence: None)
  Receive Date: 20091005
  Receipt Date: 20091005
  Transmission Date: 20100525
  Serious: Yes (Life-Threatening, Hospitalization)
  Sender: FDA-Public Use
  Company Number: None

PATIENT
  Age: 84 Year
  Sex: Male

DRUGS (2)
  1. WARFARIN SODIUM [Suspect]
     Indication: ATRIAL FIBRILLATION
     Dosage: EVERY DAY PO
     Route: 048
     Dates: start: 20090224, end: 20090922
  2. WARFARIN SODIUM [Suspect]
     Indication: DEEP VEIN THROMBOSIS
     Dosage: EVERY DAY PO
     Route: 048
     Dates: start: 20090224, end: 20090922

REACTIONS (4)
  - DRUG SCREEN POSITIVE [None]
  - INTERNATIONAL NORMALISED RATIO DECREASED [None]
  - ISCHAEMIC STROKE [None]
  - TREATMENT NONCOMPLIANCE [None]
